FAERS Safety Report 5871967-X (Version None)
Quarter: 2008Q3

REPORT INFORMATION
  Report Type: 
  Country: None (occurrence: None)
  Receive Date: 20080905
  Receipt Date: 20080818
  Transmission Date: 20090109
  Serious: Yes (Other)
  Sender: FDA-Public Use
  Company Number: GB-BAYER-200824249GPV

PATIENT
  Age: 40 Year
  Sex: Female

DRUGS (1)
  1. ALEMTUZUMAB [Suspect]
     Indication: MULTIPLE SCLEROSIS
     Route: 065

REACTIONS (2)
  - NEPHRITIS AUTOIMMUNE [None]
  - RENAL FAILURE ACUTE [None]
